FAERS Safety Report 23797828 (Version 2)
Quarter: 2024Q2

REPORT INFORMATION
  Report Type: Other
  Country: US (occurrence: None)
  Receive Date: 20240430
  Receipt Date: 20240501
  Transmission Date: 20240716
  Serious: No
  Sender: FDA-Public Use
  Company Number: US-ROCHE-3547688

PATIENT
  Age: 59 Year
  Sex: Female
  Weight: 76.272 kg

DRUGS (4)
  1. OCREVUS [Suspect]
     Active Substance: OCRELIZUMAB
     Indication: Relapsing-remitting multiple sclerosis
     Dosage: YES; DATE OF TREATMENT: 22/JAN/2024
     Route: 042
     Dates: start: 2017
  2. DALFAMPRIDINE [Concomitant]
     Active Substance: DALFAMPRIDINE
  3. REBIF [Concomitant]
     Active Substance: INTERFERON BETA-1A
  4. COPAXONE [Concomitant]
     Active Substance: GLATIRAMER ACETATE

REACTIONS (10)
  - Cataract [Not Recovered/Not Resolved]
  - Rash [Recovered/Resolved]
  - Speech disorder [Not Recovered/Not Resolved]
  - Tremor [Not Recovered/Not Resolved]
  - Balance disorder [Not Recovered/Not Resolved]
  - Cyst [Recovered/Resolved]
  - Abdominal pain upper [Unknown]
  - Oral herpes [Not Recovered/Not Resolved]
  - Urinary tract infection [Unknown]
  - Ear infection [Recovered/Resolved]
